FAERS Safety Report 9458460 (Version 1)
Quarter: 2013Q3

REPORT INFORMATION
  Report Type: Spontaneous
  Country: DK (occurrence: DE)
  Receive Date: 20130814
  Receipt Date: 20130814
  Transmission Date: 20140515
  Serious: Yes (Other)
  Sender: FDA-Public Use
  Company Number: DK-WATSON-2013-14390

PATIENT
  Age: 40 Year
  Sex: Male

DRUGS (3)
  1. SIMVASTATIN (UNKNOWN) [Suspect]
     Indication: HYPERCHOLESTEROLAEMIA
     Dosage: 40-80MG, UNK
     Route: 048
     Dates: start: 2006, end: 2011
  2. FLUVASTATIN SODIUM (UNKNOWN) [Suspect]
     Dosage: 80 MG, UNKNOWN
     Route: 048
     Dates: start: 2008
  3. ATORVASTATIN (UNKNOWN) [Suspect]
     Indication: HYPERCHOLESTEROLAEMIA
     Dosage: 10-60 MG; UNK
     Route: 048
     Dates: start: 201306

REACTIONS (3)
  - Myalgia [Not Recovered/Not Resolved]
  - Blood creatine phosphokinase increased [Not Recovered/Not Resolved]
  - Hepatic enzyme increased [Not Recovered/Not Resolved]
